FAERS Safety Report 9744086 (Version 1)
Quarter: 2013Q4

REPORT INFORMATION
  Report Type: Spontaneous
  Country: US (occurrence: US)
  Receive Date: 20131210
  Receipt Date: 20131210
  Transmission Date: 20140711
  Serious: Yes (Other)
  Sender: FDA-Public Use
  Company Number: US-PFIZER INC-2013351195

PATIENT
  Age: 6 Decade
  Sex: Female
  Weight: 69.8 kg

DRUGS (6)
  1. PREMARIN [Suspect]
     Indication: MENOPAUSAL SYMPTOMS
     Dosage: 1.25 MG, UNK
  2. PREMARIN [Suspect]
     Dosage: 0.9 MG, UNK
  3. PREMARIN [Suspect]
     Dosage: 0.625 MG, UNK
  4. PREMARIN [Suspect]
     Dosage: UNK (FOLLOWED BY 0.4 TO 0.5MG)
  5. PREMARIN [Suspect]
     Dosage: 0.3 MG, UNK
  6. PREMARIN [Suspect]
     Dosage: UNK (0.4 TO 0.5MG)
     Dates: end: 20131202

REACTIONS (3)
  - Arthritis [Unknown]
  - Headache [Unknown]
  - Feeling abnormal [Unknown]
